FAERS Safety Report 6760283-X (Version None)
Quarter: 2010Q2

REPORT INFORMATION
  Report Type: 
  Country: None (occurrence: None)
  Receive Date: 20100608
  Receipt Date: 20090604
  Transmission Date: 20101027
  Serious: No
  Sender: FDA-Public Use
  Company Number: US-BRISTOL-MYERS SQUIBB COMPANY-14655062

PATIENT
  Sex: Female

DRUGS (1)
  1. SUSTIVA [Suspect]
     Dosage: 1/2 TABLET WS GIVEN IN MORNING AND EVENING

REACTIONS (3)
  - COORDINATION ABNORMAL [None]
  - MEDICATION ERROR [None]
  - SEDATION [None]
